FAERS Safety Report 19478687 (Version 1)
Quarter: 2021Q2

REPORT INFORMATION
  Report Type: Spontaneous
  Country: US (occurrence: US)
  Receive Date: 20210630
  Receipt Date: 20210630
  Transmission Date: 20210717
  Serious: No
  Sender: FDA-Public Use
  Company Number: US-MATRIXX INITIATIVES, INC.-2113326

PATIENT
  Age: 25 Year
  Sex: Female
  Weight: 56.82 kg

DRUGS (2)
  1. SPIROLACTONE [Concomitant]
     Active Substance: SPIRONOLACTONE
  2. ZICAM COLD REMEDY RAPIDMELTS [Suspect]
     Active Substance: HOMEOPATHICS\ZINC ACETATE\ZINC GLUCONATE
     Indication: NASOPHARYNGITIS
     Route: 048
     Dates: start: 20210628, end: 20210628

REACTIONS (3)
  - Hyposmia [None]
  - Parosmia [None]
  - Dysgeusia [None]
